FAERS Safety Report 24986313 (Version 5)
Quarter: 2025Q3

REPORT INFORMATION
  Report Type: Report from Study
  Country: US (occurrence: US)
  Receive Date: 20250219
  Receipt Date: 20250710
  Transmission Date: 20251020
  Serious: No
  Sender: SUNOVION
  Company Number: US-SUMITOMO PHARMA SWITZERLAND GMBH-2025SPA001471

PATIENT

DRUGS (6)
  1. ORGOVYX [Suspect]
     Active Substance: RELUGOLIX
     Indication: Prostate cancer
     Route: 048
  2. ORGOVYX [Suspect]
     Active Substance: RELUGOLIX
     Dosage: 120 MG, QD
     Route: 048
     Dates: start: 20250128
  3. ORGOVYX [Suspect]
     Active Substance: RELUGOLIX
     Dosage: 120 MG, QD
     Route: 048
     Dates: start: 202502
  4. XTANDI [Suspect]
     Active Substance: ENZALUTAMIDE
     Indication: Product used for unknown indication
     Route: 065
  5. ROPINIROLE [Suspect]
     Active Substance: ROPINIROLE
     Indication: Blood pressure increased
     Route: 065
  6. LIPITOR [Suspect]
     Active Substance: ATORVASTATIN CALCIUM
     Indication: Blood triglycerides increased
     Route: 065

REACTIONS (16)
  - Neuropathy peripheral [Unknown]
  - Dizziness postural [Unknown]
  - Fall [Unknown]
  - Wrist fracture [Unknown]
  - Joint injury [Unknown]
  - Limb injury [Unknown]
  - Glucose tolerance impaired [Unknown]
  - Proctalgia [Unknown]
  - Cold sweat [Unknown]
  - Confusional state [Unknown]
  - Blood pressure increased [Unknown]
  - Back pain [Recovered/Resolved]
  - Pain in extremity [Unknown]
  - Blood triglycerides increased [Unknown]
  - Hot flush [Recovered/Resolved]
  - Product dose omission issue [Unknown]
